FAERS Safety Report 16644581 (Version 2)
Quarter: 2023Q4

REPORT INFORMATION
  Report Type: Spontaneous
  Country: KR (occurrence: KR)
  Receive Date: 20190729
  Receipt Date: 20231206
  Transmission Date: 20240110
  Serious: Yes (Other)
  Sender: FDA-Public Use
  Company Number: KR-BAYER-2019-135635

PATIENT
  Age: 70 Year
  Sex: Male

DRUGS (3)
  1. NEXAVAR [Suspect]
     Active Substance: SORAFENIB
     Indication: Hepatocellular carcinoma
     Dosage: 800 MG, UNK
     Dates: start: 20161020, end: 2016
  2. NEXAVAR [Suspect]
     Active Substance: SORAFENIB
     Indication: Hepatocellular carcinoma
     Dosage: DAILY DOSE 400 MG
     Dates: start: 20161110
  3. STIVARGA [Suspect]
     Active Substance: REGORAFENIB
     Indication: Hepatocellular carcinoma
     Dosage: 640 MG DAILY
     Dates: start: 20170404

REACTIONS (12)
  - Hepatocellular carcinoma [None]
  - Hepatocellular carcinoma [None]
  - Hepatocellular carcinoma [None]
  - Protein induced by vitamin K absence or antagonist II increased [None]
  - Protein induced by vitamin K absence or antagonist II increased [None]
  - Protein induced by vitamin K absence or antagonist II increased [None]
  - Protein induced by vitamin K absence or antagonist II increased [None]
  - Protein induced by vitamin K absence or antagonist II increased [None]
  - Protein induced by vitamin K absence or antagonist II increased [None]
  - Alpha 1 foetoprotein increased [None]
  - Alpha 1 foetoprotein increased [None]
  - Overdose [None]

NARRATIVE: CASE EVENT DATE: 20161229
